FAERS Safety Report 7631799-9 (Version None)
Quarter: 2011Q3

REPORT INFORMATION
  Report Type: 
  Country: None (occurrence: None)
  Receive Date: 20110725
  Receipt Date: 20110328
  Transmission Date: 20111222
  Serious: No
  Sender: FDA-Public Use
  Company Number: US-BRISTOL-MYERS SQUIBB COMPANY-15641723

PATIENT
  Age: 37 Year
  Sex: Female

DRUGS (3)
  1. COUMADIN [Suspect]
     Dates: end: 20110301
  2. LOVENOX [Suspect]
     Indication: THROMBOSIS
     Dates: start: 20110303
  3. ETHINYLESTRADIOL + NORGESTIMATE [Concomitant]

REACTIONS (1)
  - INTERNATIONAL NORMALISED RATIO INCREASED [None]
